FAERS Safety Report 18304387 (Version 1)
Quarter: 2020Q3

REPORT INFORMATION
  Report Type: Spontaneous
  Country: US (occurrence: US)
  Receive Date: 20200924
  Receipt Date: 20200924
  Transmission Date: 20201103
  Serious: Yes (Hospitalization, Other)
  Sender: FDA-Public Use
  Company Number: US-DRREDDYS-USA/USA/20/0127220

PATIENT
  Age: 30 Year
  Sex: Female

DRUGS (9)
  1. SILDENAFIL. [Concomitant]
     Active Substance: SILDENAFIL
     Indication: PRODUCT USED FOR UNKNOWN INDICATION
     Route: 048
  2. ROPIVACAINE. [Suspect]
     Active Substance: ROPIVACAINE HYDROCHLORIDE
     Indication: ANAESTHESIA
  3. BETAMETHASONE. [Concomitant]
     Active Substance: BETAMETHASONE
     Indication: MATERNAL THERAPY TO ENHANCE FOETAL LUNG MATURITY
  4. FENTANYL CITRATE. [Suspect]
     Active Substance: FENTANYL CITRATE
     Indication: ANAESTHESIA
     Dosage: RUNNING AT 2 ML/HOUR
     Route: 065
  5. CHLOROPROCAINE [Suspect]
     Active Substance: CHLOROPROCAINE
     Indication: ANAESTHESIA
     Route: 040
  6. EPOPROSTENOL. [Concomitant]
     Active Substance: EPOPROSTENOL
     Dosage: OVER A PERIOD OF 2 WEEKS
     Route: 042
  7. OXYTOCIN. [Concomitant]
     Active Substance: OXYTOCIN
     Indication: UTERINE ATONY
     Dosage: 40 UNITS OVER 30 MINUTES TO MAINTAIN ADEQUATE UTERINE TONE AFTER PLACENTAL DELIVERY
     Route: 042
  8. BUPIVACAINE. [Suspect]
     Active Substance: BUPIVACAINE
     Indication: ANAESTHESIA
     Dosage: 2?4ML
     Route: 040
  9. EPOPROSTENOL. [Concomitant]
     Active Substance: EPOPROSTENOL
     Indication: PRODUCT USED FOR UNKNOWN INDICATION
     Route: 042

REACTIONS (3)
  - Hypovolaemia [Recovering/Resolving]
  - Vasodilatation [Recovering/Resolving]
  - Umbilical cord prolapse [Recovering/Resolving]
